FAERS Safety Report 24687074 (Version 1)
Quarter: 2024Q4

REPORT INFORMATION
  Report Type: Report from Study
  Country: ES (occurrence: ES)
  Receive Date: 20241202
  Receipt Date: 20241202
  Transmission Date: 20250114
  Serious: Yes (Hospitalization)
  Sender: ABBVIE
  Company Number: ES-ABBVIE-5906383

PATIENT
  Age: 72 Year
  Sex: Female

DRUGS (5)
  1. CARBIDOPA\LEVODOPA [Suspect]
     Active Substance: CARBIDOPA\LEVODOPA
     Indication: Parkinson^s disease
     Route: 050
     Dates: start: 20200924
  2. CARBIDOPA\LEVODOPA [Suspect]
     Active Substance: CARBIDOPA\LEVODOPA
  3. LASSARS [Concomitant]
     Indication: Product used for unknown indication
  4. MEPENTOL [Concomitant]
     Indication: Product used for unknown indication
  5. Linovera [Concomitant]
     Indication: Product used for unknown indication

REACTIONS (5)
  - Inguinal hernia strangulated [Recovered/Resolved]
  - Stoma site discharge [Recovered/Resolved]
  - Stoma site erythema [Recovering/Resolving]
  - Stoma site discharge [Unknown]
  - Candida infection [Unknown]

NARRATIVE: CASE EVENT DATE: 20240101
